FAERS Safety Report 16797911 (Version 1)
Quarter: 2019Q3

REPORT INFORMATION
  Report Type: Report from Study
  Country: IT (occurrence: IT)
  Receive Date: 20190912
  Receipt Date: 20190912
  Transmission Date: 20191005
  Serious: Yes (Hospitalization)
  Sender: FDA-Public Use
  Company Number: IT-TEVA-2019-IT-1105838

PATIENT
  Age: 30 Year
  Sex: Female

DRUGS (2)
  1. TAVOR 2,5 MG COMPRESSE [Suspect]
     Active Substance: LORAZEPAM
     Indication: DRUG ABUSE
     Dosage: 15 MILLIGRAM
     Route: 048
     Dates: start: 20190617, end: 20190617
  2. PREGABALIN. [Suspect]
     Active Substance: PREGABALIN
     Indication: DRUG ABUSE
     Dosage: 12 DOSAGE FORMS
     Route: 048
     Dates: start: 20190617, end: 20190617

REACTIONS (3)
  - Drug abuse [Recovered/Resolved]
  - Sopor [Recovered/Resolved]
  - Depressed level of consciousness [Recovered/Resolved]

NARRATIVE: CASE EVENT DATE: 20190617
